FAERS Safety Report 6483559-2 (Version None)
Quarter: 2009Q4

REPORT INFORMATION
  Report Type: 
  Country: None (occurrence: None)
  Receive Date: 20091208
  Receipt Date: 20091208
  Transmission Date: 20100525
  Serious: No
  Sender: FDA-Public Use
  Company Number: None

PATIENT
  Age: 37 Year
  Sex: Female

DRUGS (1)
  1. OMNIPAQUE 240 [Suspect]
     Indication: DIAGNOSTIC PROCEDURE
     Dosage: 75ML ONCE IV
     Route: 042
     Dates: start: 20090908, end: 20090908

REACTIONS (2)
  - OXYGEN SATURATION DECREASED [None]
  - PRURITUS [None]
